FAERS Safety Report 23783788 (Version 4)
Quarter: 2024Q3

REPORT INFORMATION
  Report Type: Spontaneous
  Country: GR (occurrence: GR)
  Receive Date: 20240425
  Receipt Date: 20240910
  Transmission Date: 20241016
  Serious: No
  Sender: PFIZER
  Company Number: GR-PFIZER INC-PV202400047152

PATIENT
  Age: 10 Year
  Sex: Male
  Weight: 23 kg

DRUGS (3)
  1. GENOTROPIN [Suspect]
     Active Substance: SOMATROPIN
     Indication: Growth hormone deficiency
     Dosage: 5 MG, WEEKLY (0.6/ 0.8/ 0.6/ 0.8/ 0.6/ 0.8/ 0.8)
     Route: 058
     Dates: start: 202403
  2. GENOTROPIN [Suspect]
     Active Substance: SOMATROPIN
     Indication: Short stature
  3. ACCU THYROX [Concomitant]
     Indication: Autoimmune thyroiditis
     Dosage: 0.7 ML, DAILY

REACTIONS (3)
  - Device leakage [Unknown]
  - Device use confusion [Unknown]
  - Poor quality device used [Unknown]

NARRATIVE: CASE EVENT DATE: 20240407
